FAERS Safety Report 22352555 (Version 2)
Quarter: 2023Q2

REPORT INFORMATION
  Report Type: Spontaneous
  Country: FI (occurrence: None)
  Receive Date: 20230522
  Receipt Date: 20230607
  Transmission Date: 20230722
  Serious: Yes (Other)
  Sender: FDA-Public Use
  Company Number: FI-ROCHE-3351183

PATIENT
  Age: 77 Year
  Sex: Female

DRUGS (1)
  1. VABYSMO [Suspect]
     Active Substance: FARICIMAB-SVOA
     Indication: Neovascular age-related macular degeneration
     Route: 065
     Dates: start: 20230420

REACTIONS (2)
  - Iridocyclitis [Recovering/Resolving]
  - Iritis [Recovering/Resolving]

NARRATIVE: CASE EVENT DATE: 20230501
